FAERS Safety Report 23763630 (Version 1)
Quarter: 2024Q2

REPORT INFORMATION
  Report Type: Spontaneous
  Country: US (occurrence: None)
  Receive Date: 20240417
  Receipt Date: 20240417
  Transmission Date: 20240715
  Serious: No
  Sender: FDA-Public Use
  Company Number: None

PATIENT
  Age: 64 Year
  Sex: Male
  Weight: 56.7 kg

DRUGS (6)
  1. SILDENAFIL CITRATE [Suspect]
     Active Substance: SILDENAFIL CITRATE
     Dosage: OTHER QUANTITY : 50 PILLS;?
     Route: 048
  2. LEVOTHYROXINE [Concomitant]
     Dosage: 50 PILLS MOUTH
  3. Propanolol [Concomitant]
  4. Super Vitamin B-Complex [Concomitant]
  5. FISH OIL [Concomitant]
  6. VITAMIN D3 [Concomitant]
     Active Substance: CHOLECALCIFEROL

REACTIONS (3)
  - Rash [None]
  - Product communication issue [None]
  - Physical product label issue [None]

NARRATIVE: CASE EVENT DATE: 20240315
